FAERS Safety Report 8476081-5 (Version None)
Quarter: 2012Q2

REPORT INFORMATION
  Report Type: 
  Country: None (occurrence: None)
  Receive Date: 20120628
  Receipt Date: 20120615
  Transmission Date: 20120825
  Serious: Yes (Hospitalization)
  Sender: FDA-Public Use
  Company Number: US-ELI_LILLY_AND_COMPANY-US201205001619

PATIENT
  Sex: Male

DRUGS (5)
  1. CLOZARIL [Concomitant]
     Dosage: 60 MG, UNKNOWN
  2. ZYPREXA [Suspect]
     Dosage: 20 MG, UNKNOWN
     Route: 048
  3. ASENAPINE [Concomitant]
     Dosage: 20 MG, UNKNOWN
  4. ZYPREXA RELPREVV [Suspect]
     Indication: SCHIZOPHRENIA
     Dosage: 300 MG, MONTHLY (1/M)
     Route: 030
     Dates: start: 20120314
  5. INDERAL [Concomitant]
     Dosage: 20 MG, UNKNOWN

REACTIONS (5)
  - OVERDOSE [None]
  - TACHYCARDIA [None]
  - SCHIZOPHRENIA, DISORGANISED TYPE [None]
  - ORTHOSTATIC HYPOTENSION [None]
  - CONFUSIONAL STATE [None]
